FAERS Safety Report 23993626 (Version 3)
Quarter: 2024Q3

REPORT INFORMATION
  Report Type: Spontaneous
  Country: NZ (occurrence: NZ)
  Receive Date: 20240620
  Receipt Date: 20240702
  Transmission Date: 20241017
  Serious: Yes (Disabling, Other)
  Sender: ACCORD
  Company Number: NZ-Accord-430533

PATIENT
  Age: 67 Year
  Sex: Male

DRUGS (2)
  1. DOCETAXEL [Suspect]
     Active Substance: DOCETAXEL\DOCETAXEL ANHYDROUS
     Indication: Prostate cancer metastatic
     Dosage: 3 CYCLES
  2. DOCETAXEL [Suspect]
     Active Substance: DOCETAXEL\DOCETAXEL ANHYDROUS
     Indication: Metastases to lymph nodes

REACTIONS (3)
  - Cystoid macular oedema [Recovered/Resolved]
  - Cataract [Recovering/Resolving]
  - Blindness [Recovering/Resolving]
